FAERS Safety Report 19808854 (Version 1)
Quarter: 2021Q3

REPORT INFORMATION
  Report Type: Spontaneous
  Country: CN (occurrence: CN)
  Receive Date: 20210908
  Receipt Date: 20210908
  Transmission Date: 20211014
  Serious: Yes (Hospitalization)
  Sender: FDA-Public Use
  Company Number: CN-TEVA-2021-CN-1949906

PATIENT
  Age: 34 Year
  Sex: Male

DRUGS (1)
  1. CYCLOSPORINE A [Suspect]
     Active Substance: CYCLOSPORINE
     Indication: APLASTIC ANAEMIA
     Route: 065

REACTIONS (3)
  - Cerebral infarction [Recovering/Resolving]
  - Cerebral artery thrombosis [Recovering/Resolving]
  - Cerebrovascular accident [Recovering/Resolving]
